FAERS Safety Report 19005848 (Version 1)
Quarter: 2021Q1

REPORT INFORMATION
  Report Type: Spontaneous
  Country: GB (occurrence: GB)
  Receive Date: 20210314
  Receipt Date: 20210314
  Transmission Date: 20210420
  Serious: Yes (Other)
  Sender: FDA-Public Use
  Company Number: GB-TEVA-2021-GB-1888619

PATIENT
  Age: 76 Year
  Sex: Female
  Weight: 79 kg

DRUGS (5)
  1. LISINOPRIL. [Suspect]
     Active Substance: LISINOPRIL
     Dosage: 2.5 MILLIGRAM DAILY;
     Dates: start: 20210118
  2. BETNOVATE [Concomitant]
     Active Substance: BETAMETHASONE
     Dosage: 120 GRAM DAILY;
     Dates: start: 20210118
  3. OTOMIZE [Concomitant]
     Indication: EAR DISCOMFORT
     Dosage: 15 ML DAILY; ONE SPRAY TO BE USED IN THE AFFECTED EAR(S)
     Dates: start: 20210106
  4. PREDNISOLONE. [Concomitant]
     Active Substance: PREDNISOLONE
     Dosage: 30 MILLIGRAM DAILY;
     Dates: start: 20210118
  5. BETNOVATE [Concomitant]
     Active Substance: BETAMETHASONE
     Dosage: 120 GRAM DAILY; APPLY THINLY
     Dates: start: 20201112, end: 20201225

REACTIONS (3)
  - Skin exfoliation [Unknown]
  - Skin burning sensation [Unknown]
  - Skin irritation [Unknown]
